FAERS Safety Report 6124317-8 (Version None)
Quarter: 2009Q1

REPORT INFORMATION
  Report Type: 
  Country: None (occurrence: None)
  Receive Date: 20090318
  Receipt Date: 20090318
  Transmission Date: 20090719
  Serious: Yes (Hospitalization, Other)
  Sender: FDA-Public Use
  Company Number: None

PATIENT
  Age: 43 Year
  Sex: Female
  Weight: 90.7194 kg

DRUGS (1)
  1. NARCAN [Suspect]
     Dosage: 2 MG GIVEN ONCE IM GIVEN ONCE
     Route: 030
     Dates: start: 20090203, end: 20090203

REACTIONS (6)
  - AGGRESSION [None]
  - BLOOD GLUCOSE DECREASED [None]
  - DELIRIUM [None]
  - MEMORY IMPAIRMENT [None]
  - RHABDOMYOLYSIS [None]
  - SCREAMING [None]
